FAERS Safety Report 5222294-5 (Version None)
Quarter: 2007Q1

REPORT INFORMATION
  Report Type: 
  Country: None (occurrence: None)
  Receive Date: 20070129
  Receipt Date: 20060706
  Transmission Date: 20070707
  Serious: No
  Sender: FDA-Public Use
  Company Number: US-GLAXOSMITHKLINE-A0609546A

PATIENT
  Age: 8 Year
  Sex: Female

DRUGS (3)
  1. MEPRON [Suspect]
     Indication: DRUG USE FOR UNKNOWN INDICATION
     Dosage: .5TSP PER DAY
     Route: 048
     Dates: start: 20060101
  2. OMNICEF [Concomitant]
  3. ZITHROMAX [Concomitant]

REACTIONS (1)
  - EPHELIDES [None]
